FAERS Safety Report 9690532 (Version 2)
Quarter: 2013Q4

REPORT INFORMATION
  Report Type: Spontaneous
  Country: IQ (occurrence: IQ)
  Receive Date: 20131115
  Receipt Date: 20131120
  Transmission Date: 20140711
  Serious: Yes (Other)
  Sender: FDA-Public Use
  Company Number: IQ-JNJFOC-20131105737

PATIENT
  Age: 53 Year
  Sex: Male
  Weight: 60 kg

DRUGS (2)
  1. REMICADE [Suspect]
     Indication: ANKYLOSING SPONDYLITIS
     Route: 042
     Dates: start: 201212
  2. REMICADE [Suspect]
     Indication: ANKYLOSING SPONDYLITIS
     Dosage: 5TH INFUSION
     Route: 042
     Dates: end: 201306

REACTIONS (3)
  - Pulmonary tuberculosis [Recovering/Resolving]
  - Upper motor neurone lesion [Unknown]
  - Muscular weakness [Unknown]
